FAERS Safety Report 21651609 (Version 1)
Quarter: 2022Q4

REPORT INFORMATION
  Report Type: Spontaneous
  Country: US (occurrence: None)
  Receive Date: 20221127
  Receipt Date: 20221127
  Transmission Date: 20230113
  Serious: Yes (Other)
  Sender: FDA-Public Use
  Company Number: None

PATIENT
  Age: 62 Year
  Sex: Male
  Weight: 78.5 kg

DRUGS (8)
  1. OXALIPLATIN [Suspect]
     Active Substance: OXALIPLATIN
     Indication: Colon cancer
     Dosage: OTHER FREQUENCY : Q3WEEK;?
     Route: 041
     Dates: start: 20220916
  2. OXALIPLATIN [Suspect]
     Active Substance: OXALIPLATIN
     Indication: Colon cancer
     Dosage: OTHER FREQUENCY : Q3WEEKS;?
     Route: 041
     Dates: start: 20220916
  3. CETIRIZINE [Concomitant]
     Active Substance: CETIRIZINE HYDROCHLORIDE
     Dates: start: 20220916
  4. DEXAMETHASONE [Concomitant]
     Active Substance: DEXAMETHASONE
     Dates: start: 20220916
  5. FAMOTIDINE [Concomitant]
     Active Substance: FAMOTIDINE
     Dates: start: 20220916
  6. MONTELUKAST [Concomitant]
     Active Substance: MONTELUKAST SODIUM
     Dates: start: 20220916
  7. Palonestron [Concomitant]
     Dates: start: 20220916
  8. CAPECITABINE [Concomitant]
     Active Substance: CAPECITABINE
     Dates: start: 20220916

REACTIONS (8)
  - Wheezing [None]
  - Cyanosis [None]
  - Infusion related reaction [None]
  - Chest pain [None]
  - Chest discomfort [None]
  - Swelling face [None]
  - Dysphagia [None]
  - Lung disorder [None]

NARRATIVE: CASE EVENT DATE: 20221118
